FAERS Safety Report 6761446-X (Version None)
Quarter: 2010Q2

REPORT INFORMATION
  Report Type: 
  Country: None (occurrence: None)
  Receive Date: 20100608
  Receipt Date: 20100604
  Transmission Date: 20101027
  Serious: Yes (Hospitalization)
  Sender: FDA-Public Use
  Company Number: IT-ROCHE-707402

PATIENT
  Sex: Female

DRUGS (7)
  1. ROCEPHIN [Suspect]
     Indication: BRONCHITIS
     Route: 042
     Dates: start: 20100517, end: 20100525
  2. METOPROLOL TARTRATE [Concomitant]
     Dates: start: 20100428, end: 20100525
  3. LANOXIN [Concomitant]
     Dates: start: 20100428, end: 20100525
  4. LASIX [Concomitant]
     Route: 042
  5. ALDACTONE [Concomitant]
     Dates: start: 20100428, end: 20100525
  6. TRIATEC [Concomitant]
     Dates: start: 20100428, end: 20100525
  7. COUMADIN [Concomitant]
     Dosage: ROUTE: OS.
     Route: 048

REACTIONS (2)
  - CLOSTRIDIAL INFECTION [None]
  - RENAL FAILURE ACUTE [None]
